FAERS Safety Report 25855042 (Version 1)
Quarter: 2025Q3

REPORT INFORMATION
  Report Type: Spontaneous
  Country: US (occurrence: US)
  Receive Date: 20250927
  Receipt Date: 20250927
  Transmission Date: 20251020
  Serious: No
  Sender: SANOFI AVENTIS
  Company Number: US-SA-2025SA285772

PATIENT
  Age: 36 Year
  Sex: Male

DRUGS (1)
  1. ALTUVIIIO [Suspect]
     Active Substance: EFANESOCTOCOG ALFA
     Route: 042

REACTIONS (3)
  - Joint injury [Unknown]
  - Traumatic haemorrhage [Unknown]
  - Traumatic pain [Unknown]

NARRATIVE: CASE EVENT DATE: 20250901
